FAERS Safety Report 9336636 (Version 1)
Quarter: 2013Q2

REPORT INFORMATION
  Report Type: Report from Study
  Country: AR (occurrence: AR)
  Receive Date: 20130607
  Receipt Date: 20130607
  Transmission Date: 20140414
  Serious: No
  Sender: FDA-Public Use
  Company Number: PHHY2013AR057261

PATIENT
  Sex: Female

DRUGS (1)
  1. DIOVAN D [Suspect]
     Indication: HYPERTENSION
     Dosage: 1 DF (VALS 320 MG, HCTZ 25 MG) DAILY
     Route: 048
     Dates: start: 2012

REACTIONS (2)
  - Dysphonia [Unknown]
  - Bronchitis [Recovering/Resolving]
